FAERS Safety Report 12429001 (Version 3)
Quarter: 2016Q3

REPORT INFORMATION
  Report Type: Spontaneous
  Country: US (occurrence: US)
  Receive Date: 20160602
  Receipt Date: 20160701
  Transmission Date: 20161109
  Serious: Yes (Other)
  Sender: FDA-Public Use
  Company Number: US-OTSUKA-2016_011768

PATIENT
  Sex: Female
  Weight: 66.67 kg

DRUGS (5)
  1. ELIQUIS [Concomitant]
     Active Substance: APIXABAN
     Indication: ATRIAL FLUTTER
     Dosage: UNK
     Route: 065
  2. DACOGEN [Suspect]
     Active Substance: DECITABINE
     Dosage: 15MG/M2 ON DAYS 1-3 ADMINISTERED EVERY 28 DAYS
     Route: 042
     Dates: start: 20151026
  3. REVLIMID [Suspect]
     Active Substance: LENALIDOMIDE
     Indication: PRODUCT USED FOR UNKNOWN INDICATION
     Dosage: UNK
     Route: 065
  4. DACOGEN [Suspect]
     Active Substance: DECITABINE
     Dosage: 15 MG/M2,  ON DAYS 1-3 EVERY 6 WEEKS
     Route: 042
  5. DACOGEN [Suspect]
     Active Substance: DECITABINE
     Indication: MYELODYSPLASTIC SYNDROME
     Dosage: UNK
     Route: 065
     Dates: start: 20140630, end: 201411

REACTIONS (3)
  - Dizziness [Unknown]
  - Neuropathy peripheral [Unknown]
  - Cognitive disorder [Unknown]
